FAERS Safety Report 7802024-0 (Version None)
Quarter: 2011Q4

REPORT INFORMATION
  Report Type: 
  Country: None (occurrence: None)
  Receive Date: 20111007
  Receipt Date: 20111006
  Transmission Date: 20120403
  Serious: Yes (Hospitalization)
  Sender: FDA-Public Use
  Company Number: PHEH2011US05522

PATIENT
  Sex: Female
  Weight: 112.47 kg

DRUGS (1)
  1. EXJADE [Suspect]
     Dosage: 2000 MG, QD

REACTIONS (2)
  - FLUID RETENTION [None]
  - INFECTION [None]
